FAERS Safety Report 15891108 (Version 1)
Quarter: 2019Q1

REPORT INFORMATION
  Report Type: Spontaneous
  Country: ES (occurrence: ES)
  Receive Date: 20190130
  Receipt Date: 20190130
  Transmission Date: 20190417
  Serious: Yes (Other)
  Sender: FDA-Public Use
  Company Number: ES-MYLANLABS-2019M1007943

PATIENT
  Age: 18 Year
  Sex: Female

DRUGS (6)
  1. RILAST [Concomitant]
     Active Substance: BUDESONIDE\FORMOTEROL
     Indication: ASTHMA
     Dosage: 2 DOSAGE FORM, TID
     Route: 055
  2. YURELAX 10 MG C?PSULAS DURAS [Suspect]
     Active Substance: CYCLOBENZAPRINE HYDROCHLORIDE
     Indication: NECK PAIN
     Dosage: 10 MILLIGRAM, QD
     Route: 048
     Dates: start: 20180522, end: 20180525
  3. ETONOGESTREL [Concomitant]
     Active Substance: ETONOGESTREL
     Dosage: 68 MILLILITER, MONTHLY
     Route: 062
  4. NORFLOXACINO [Concomitant]
     Active Substance: NORFLOXACIN
     Indication: GENITOURINARY TRACT INFECTION
     Dosage: 400 MILLIGRAM
     Route: 048
     Dates: start: 20180524, end: 20180528
  5. FOSFOMICINA                        /00552501/ [Concomitant]
     Active Substance: FOSFOMYCIN
     Indication: GENITOURINARY TRACT INFECTION
     Dosage: 3 GRAM, QD
     Route: 048
     Dates: start: 20180522, end: 20180523
  6. SALBUTAMOL ALDO UNION [Concomitant]
     Indication: ASTHMA
     Dosage: 100 MICROGRAM
     Route: 055

REACTIONS (2)
  - Hypotonic urinary bladder [Recovered/Resolved]
  - Urinary retention [Recovered/Resolved]

NARRATIVE: CASE EVENT DATE: 20180522
